FAERS Safety Report 25910359 (Version 2)
Quarter: 2025Q4

REPORT INFORMATION
  Report Type: Report from Study
  Country: KR (occurrence: KR)
  Receive Date: 20251012
  Receipt Date: 20251230
  Transmission Date: 20260118
  Serious: Yes (Death, Hospitalization, Other)
  Sender: BRISTOL-MYERS SQUIBB COMPANY
  Company Number: KR-BRISTOL-MYERS SQUIBB COMPANY-2025-139147

PATIENT
  Age: 46 Year
  Sex: Female

DRUGS (3)
  1. YERVOY [Suspect]
     Active Substance: IPILIMUMAB
     Indication: Soft tissue sarcoma
     Dosage: 50/10 MG/ML ONCE
     Route: 042
     Dates: start: 20250922, end: 20250922
  2. OPDIVO [Suspect]
     Active Substance: NIVOLUMAB
     Indication: Soft tissue sarcoma
     Dosage: 40/4 MG/ML ONCE
     Route: 042
     Dates: start: 20250922, end: 20250922
  3. OPDIVO [Suspect]
     Active Substance: NIVOLUMAB
     Dosage: 100/10 MG/ML ONCE
     Route: 042
     Dates: start: 20250922, end: 20250922

REACTIONS (2)
  - Death [Fatal]
  - Off label use [Unknown]
